FAERS Safety Report 18622448 (Version 1)
Quarter: 2020Q4

REPORT INFORMATION
  Report Type: Spontaneous
  Country: US (occurrence: US)
  Receive Date: 20201215
  Receipt Date: 20201215
  Transmission Date: 20210114
  Serious: No
  Sender: FDA-Public Use
  Company Number: None

PATIENT
  Sex: Female

DRUGS (21)
  1. DOXYCYLINE [Concomitant]
     Active Substance: DOXYCYCLINE
  2. LEVOTHYROXIN [Concomitant]
     Active Substance: LEVOTHYROXINE
  3. LORAZEPAM. [Concomitant]
     Active Substance: LORAZEPAM
  4. SETRELINE [Concomitant]
  5. AMANTADINE. [Concomitant]
     Active Substance: AMANTADINE HYDROCHLORIDE
  6. ATORVASTATIN [Concomitant]
     Active Substance: ATORVASTATIN
  7. GABAPENTION [Concomitant]
  8. BREO ELPTAINH [Concomitant]
  9. ROPINROLE [Concomitant]
     Active Substance: ROPINIROLE
  10. FLUXETINE [Concomitant]
  11. LOSATRAN POT [Concomitant]
  12. PREDNISONE. [Concomitant]
     Active Substance: PREDNISONE
  13. DICOFENAC [Concomitant]
  14. SOLFENACIN [Concomitant]
  15. VITAMIN D [Concomitant]
     Active Substance: VITAMIN D NOS
  16. ESBRIET [Suspect]
     Active Substance: PIRFENIDONE
     Indication: IDIOPATHIC PULMONARY FIBROSIS
     Dosage: ?          OTHER FREQUENCY:THREE TIMES A DAY;?
     Route: 048
     Dates: start: 20180830
  17. FAMOTIDINE. [Concomitant]
     Active Substance: FAMOTIDINE
  18. LORATADINE. [Concomitant]
     Active Substance: LORATADINE
  19. TEMAZEPAM. [Concomitant]
     Active Substance: TEMAZEPAM
  20. ALPRAZOLAM. [Concomitant]
     Active Substance: ALPRAZOLAM
  21. CETIRIZINE [Concomitant]
     Active Substance: CETIRIZINE HYDROCHLORIDE

REACTIONS (1)
  - Dyspnoea [None]
